FAERS Safety Report 7929806-9 (Version None)
Quarter: 2011Q4

REPORT INFORMATION
  Report Type: 
  Country: None (occurrence: None)
  Receive Date: 20111121
  Receipt Date: 20111110
  Transmission Date: 20120403
  Serious: Yes (Hospitalization, Other)
  Sender: FDA-Public Use
  Company Number: US-BRISTOL-MYERS SQUIBB COMPANY-16224784

PATIENT
  Age: 86 Year
  Sex: Male
  Weight: 91 kg

DRUGS (3)
  1. PREDNISONE TAB [Concomitant]
  2. COUMADIN [Suspect]
     Indication: ATRIAL FIBRILLATION
     Dosage: 1DF:1 MG, 2 MG, 2.5 MG, AND 5 MG  COUMADIN 2MG  NDC: 0056017070 LOT: 9L49868A EXP:DEC2012
     Dates: start: 20030101
  3. FLOMAX [Concomitant]

REACTIONS (3)
  - TEMPORAL ARTERITIS [None]
  - OSTEOARTHRITIS [None]
  - INTERNATIONAL NORMALISED RATIO FLUCTUATION [None]
